FAERS Safety Report 8343620-4 (Version None)
Quarter: 2012Q2

REPORT INFORMATION
  Report Type: 
  Country: None (occurrence: None)
  Receive Date: 20120508
  Receipt Date: 20100617
  Transmission Date: 20120825
  Serious: No
  Sender: FDA-Public Use
  Company Number: US-TEVA-2010003304

PATIENT

DRUGS (1)
  1. TREANDA [Suspect]
     Route: 042

REACTIONS (3)
  - LYMPHADENOPATHY [None]
  - SPLENOMEGALY [None]
  - WHITE BLOOD CELL COUNT DECREASED [None]
